FAERS Safety Report 23050967 (Version 2)
Quarter: 2024Q1

REPORT INFORMATION
  Report Type: Spontaneous
  Country: US (occurrence: US)
  Receive Date: 20231010
  Receipt Date: 20240105
  Transmission Date: 20240409
  Serious: No
  Sender: FDA-Public Use
  Company Number: US-SA-SAC20231003001851

PATIENT
  Age: 66 Year
  Sex: Male

DRUGS (1)
  1. DUPIXENT [Suspect]
     Active Substance: DUPILUMAB
     Indication: Dermatitis atopic
     Dosage: 300 MG, QOW
     Route: 058

REACTIONS (16)
  - Rosacea [Unknown]
  - Throat irritation [Unknown]
  - Erythema [Unknown]
  - Dry skin [Unknown]
  - Skin swelling [Unknown]
  - Skin discomfort [Unknown]
  - Tinea pedis [Unknown]
  - Skin haemorrhage [Unknown]
  - Pain of skin [Unknown]
  - Scab [Unknown]
  - Skin exfoliation [Unknown]
  - Skin fissures [Unknown]
  - Condition aggravated [Unknown]
  - Skin ulcer [Recovered/Resolved]
  - Skin discolouration [Unknown]
  - Rash [Unknown]

NARRATIVE: CASE EVENT DATE: 20230928
